FAERS Safety Report 21772010 (Version 1)
Quarter: 2022Q4

REPORT INFORMATION
  Report Type: Report from Study
  Country: US (occurrence: US)
  Receive Date: 20221223
  Receipt Date: 20221223
  Transmission Date: 20230113
  Serious: Yes (Other)
  Sender: FDA-Public Use
  Company Number: US-JNJFOC-20221137949

PATIENT
  Age: 52 Year
  Sex: Female

DRUGS (3)
  1. SPRAVATO [Suspect]
     Active Substance: ESKETAMINE
     Indication: Suicidal ideation
     Dosage: ^56 MG, 1 TOTAL DOSE^
     Dates: start: 20221102, end: 20221102
  2. SPRAVATO [Suspect]
     Active Substance: ESKETAMINE
     Indication: Depression
     Dosage: ^84 MG, 2 TOTAL DOSES^
     Dates: start: 20221104, end: 20221107
  3. SPRAVATO [Suspect]
     Active Substance: ESKETAMINE
     Dosage: ^112 MG, 1 TOTAL DOSE^
     Dates: start: 20221212, end: 20221212

REACTIONS (9)
  - Nephrolithiasis [Not Recovered/Not Resolved]
  - Abnormal behaviour [Recovering/Resolving]
  - Stress [Recovering/Resolving]
  - Feeling of relaxation [Recovering/Resolving]
  - Fatigue [Recovering/Resolving]
  - Depression [Not Recovered/Not Resolved]
  - Positive airway pressure therapy [Unknown]
  - Feeling abnormal [Recovering/Resolving]
  - Irritability [Not Recovered/Not Resolved]

NARRATIVE: CASE EVENT DATE: 20221102
